FAERS Safety Report 5871772-4 (Version None)
Quarter: 2008Q3

REPORT INFORMATION
  Report Type: 
  Country: None (occurrence: None)
  Receive Date: 20080904
  Receipt Date: 20080904
  Transmission Date: 20090109
  Serious: Yes (Hospitalization)
  Sender: FDA-Public Use
  Company Number: None

PATIENT
  Sex: Female

DRUGS (4)
  1. DILTIAZEM CD [Suspect]
     Indication: HYPERTENSION
     Dosage: ONE CAPSULE TWICE DAILY
     Dates: start: 20080821, end: 20080825
  2. ETODOLAC [Concomitant]
  3. SOTALOL HCL [Concomitant]
  4. ARMOUR THYROID [Concomitant]

REACTIONS (4)
  - BLOOD PRESSURE INCREASED [None]
  - DIZZINESS [None]
  - OEDEMA PERIPHERAL [None]
  - PALPITATIONS [None]
